FAERS Safety Report 15201252 (Version 1)
Quarter: 2018Q3

REPORT INFORMATION
  Report Type: Spontaneous
  Country: US (occurrence: US)
  Receive Date: 20180627
  Receipt Date: 20180627
  Transmission Date: 20181010
  Serious: No
  Sender: FDA-Public Use
  Company Number: None

PATIENT
  Age: 53 Year
  Sex: Female
  Weight: 83.01 kg

DRUGS (2)
  1. OVER THE COUNTER ALLERGY PILLS [Concomitant]
  2. ELIQUIS [Suspect]
     Active Substance: APIXABAN
     Indication: THROMBOSIS
     Dosage: TWICE DAILY; MOUTH; FIRST WEEK 3 PILLS
     Route: 048
     Dates: start: 20180619

REACTIONS (3)
  - Headache [None]
  - Migraine [None]
  - Retching [None]

NARRATIVE: CASE EVENT DATE: 20180619
